FAERS Safety Report 7153890-6 (Version None)
Quarter: 2010Q4

REPORT INFORMATION
  Report Type: 
  Country: None (occurrence: None)
  Receive Date: 20101213
  Receipt Date: 20101022
  Transmission Date: 20110411
  Serious: No
  Sender: FDA-Public Use
  Company Number: US-ABBOTT-10P-163-0680316-00

PATIENT
  Sex: Female
  Weight: 113.5 kg

DRUGS (2)
  1. MERIDIA [Suspect]
     Indication: WEIGHT DECREASED
     Route: 048
     Dates: start: 20100401, end: 20100501
  2. MERIDIA [Suspect]
     Dosage: DAILY BLK/WHT CAP NOT SURE OF STRENGTH
     Route: 048
     Dates: start: 20070101, end: 20070101

REACTIONS (1)
  - DRUG INEFFECTIVE [None]
